FAERS Safety Report 5818883-7 (Version None)
Quarter: 2008Q3

REPORT INFORMATION
  Report Type: 
  Country: None (occurrence: None)
  Receive Date: 20080723
  Receipt Date: 20080714
  Transmission Date: 20090109
  Serious: Yes (Hospitalization, Other)
  Sender: FDA-Public Use
  Company Number: NO-BRISTOL-MYERS SQUIBB COMPANY-14261515

PATIENT
  Age: 53 Year
  Sex: Male

DRUGS (9)
  1. ORENCIA [Suspect]
     Indication: ANKYLOSING SPONDYLITIS
     Route: 042
     Dates: start: 20070918, end: 20080324
  2. NEXIUM [Concomitant]
     Indication: GASTRIC ULCER
     Route: 048
  3. ACETAMINOPHEN [Concomitant]
     Indication: PAIN
     Route: 048
  4. DOLCONTIN [Concomitant]
     Indication: PAIN
     Route: 048
  5. CALCIGRAN [Concomitant]
     Indication: OSTEOPOROSIS
     Dosage: CALCIGRAN FORTE
     Route: 048
  6. SOMADRIL [Concomitant]
     Indication: PAIN
     Route: 048
  7. FLUNIPAM [Concomitant]
     Indication: SLEEP DISORDER
     Route: 048
  8. ALENDRONIC ACID [Concomitant]
     Indication: OSTEOPOROSIS
     Route: 048
  9. PREDNISOLONE [Concomitant]
     Indication: POLYARTHRITIS
     Route: 048

REACTIONS (8)
  - ARTHRITIS [None]
  - BALANCE DISORDER [None]
  - CONVULSION [None]
  - DECREASED APPETITE [None]
  - DIZZINESS [None]
  - DYSPNOEA [None]
  - ENCEPHALOPATHY [None]
  - VISUAL IMPAIRMENT [None]
